FAERS Safety Report 5553704-1 (Version None)
Quarter: 2007Q4

REPORT INFORMATION
  Report Type: 
  Country: None (occurrence: None)
  Receive Date: 20071213
  Receipt Date: 20071212
  Transmission Date: 20080405
  Serious: Yes (Hospitalization)
  Sender: FDA-Public Use
  Company Number: PL-BRISTOL-MYERS SQUIBB COMPANY-13775424

PATIENT
  Age: 72 Year
  Sex: Male
  Weight: 69 kg

DRUGS (9)
  1. CARBOPLATIN [Suspect]
     Indication: NON-SMALL CELL LUNG CANCER
     Route: 042
     Dates: start: 20070307
  2. PACLITAXEL [Suspect]
     Indication: NON-SMALL CELL LUNG CANCER
     Route: 042
     Dates: start: 20070307
  3. PF-3512676 [Suspect]
     Indication: NON-SMALL CELL LUNG CANCER
     Dosage: ON DAY 8 AND DAY 15 OF 21 DAY CYCLE.
     Route: 058
     Dates: start: 20070314
  4. BISOPROLOL FUMARATE [Concomitant]
     Route: 048
     Dates: start: 19990101
  5. PERINDOPRIL [Concomitant]
     Route: 048
     Dates: start: 20070308
  6. INSULIN [Concomitant]
     Route: 058
     Dates: start: 20070201
  7. ACETYLSALICYLIC ACID SRT [Concomitant]
     Route: 048
     Dates: start: 19990101
  8. METFORMIN HCL [Concomitant]
     Route: 048
     Dates: start: 19990101
  9. ISOSORBIDE MONONITRATE [Concomitant]
     Route: 048
     Dates: start: 19990101

REACTIONS (1)
  - DYSPNOEA [None]
